FAERS Safety Report 6905422-2 (Version None)
Quarter: 2010Q3

REPORT INFORMATION
  Report Type: 
  Country: None (occurrence: None)
  Receive Date: 20100804
  Receipt Date: 20100727
  Transmission Date: 20110219
  Serious: Yes (Hospitalization)
  Sender: FDA-Public Use
  Company Number: DE-WYE-G06468310

PATIENT
  Sex: Female
  Weight: 72.8 kg

DRUGS (10)
  1. TORISEL [Suspect]
     Indication: METASTATIC RENAL CELL CARCINOMA
     Route: 042
     Dates: start: 20091103, end: 20100325
  2. TORISEL [Suspect]
     Route: 042
     Dates: start: 20100408, end: 20100722
  3. HYDROCHLOROTHIAZIDE [Concomitant]
     Route: 048
  4. METOPROLOL SUCCINATE [Concomitant]
     Route: 048
  5. TAVEGIL [Concomitant]
     Indication: PREMEDICATION
     Dosage: 2 MG PRIOR TO TORISEL ADMINISTRATION
     Route: 042
     Dates: start: 20091103
  6. PANTOZOL [Concomitant]
     Route: 048
  7. TETRAZEPAM [Concomitant]
     Route: 048
  8. NOVALGIN [Concomitant]
     Route: 048
  9. DIOVAN [Concomitant]
     Route: 048
  10. ARCOXIA [Concomitant]
     Route: 048

REACTIONS (4)
  - ANAEMIA [None]
  - CLOSTRIDIUM DIFFICILE COLITIS [None]
  - GENERAL PHYSICAL HEALTH DETERIORATION [None]
  - NIGHT SWEATS [None]
